FAERS Safety Report 19906477 (Version 4)
Quarter: 2022Q1

REPORT INFORMATION
  Report Type: Spontaneous
  Country: US (occurrence: US)
  Receive Date: 20211001
  Receipt Date: 20220114
  Transmission Date: 20220423
  Serious: No
  Sender: FDA-Public Use
  Company Number: US-SA-SAC20210929000138

PATIENT
  Age: 20 Year
  Sex: Male

DRUGS (1)
  1. DUPIXENT [Suspect]
     Active Substance: DUPILUMAB
     Indication: Dermatitis atopic
     Dosage: 300 MG, QOW
     Route: 058
     Dates: start: 20210107

REACTIONS (4)
  - Injection site reaction [Unknown]
  - Injection site pain [Unknown]
  - Eye irritation [Unknown]
  - Dry eye [Unknown]

NARRATIVE: CASE EVENT DATE: 20210701
